FAERS Safety Report 15077187 (Version 1)
Quarter: 2018Q2

REPORT INFORMATION
  Report Type: Spontaneous
  Country: AU (occurrence: AU)
  Receive Date: 20180627
  Receipt Date: 20180627
  Transmission Date: 20180711
  Serious: Yes (Other)
  Sender: FDA-Public Use
  Company Number: AU-BAUSCH-BL-2018-017279

PATIENT
  Age: 65 Year
  Sex: Male

DRUGS (1)
  1. DEXAMETHASONE. [Suspect]
     Active Substance: DEXAMETHASONE
     Indication: PRODUCT USED FOR UNKNOWN INDICATION
     Dosage: CHRONIC STEROID THERAPY
     Route: 065

REACTIONS (5)
  - Renin increased [Unknown]
  - Secondary hypogonadism [Unknown]
  - Sleep apnoea syndrome [Unknown]
  - Type 2 diabetes mellitus [Unknown]
  - Obesity [Unknown]
